FAERS Safety Report 10873288 (Version 2)
Quarter: 2015Q1

REPORT INFORMATION
  Report Type: Spontaneous
  Country: CA (occurrence: None)
  Receive Date: 20150223
  Receipt Date: 20150312
  Transmission Date: 20150721
  Serious: Yes (Hospitalization)
  Sender: FDA-Public Use
  Company Number: 2015CA0062

PATIENT
  Age: 58 Year
  Sex: Female

DRUGS (1)
  1. KINERET [Suspect]
     Active Substance: ANAKINRA
     Indication: RHEUMATOID ARTHRITIS
     Dosage: 100 MG (100 MG, 1 IN 1 D), SUBCUTANEOUS?
     Route: 058
     Dates: start: 20020222

REACTIONS (4)
  - Drug dose omission [None]
  - Lower limb fracture [None]
  - Post procedural pulmonary embolism [None]
  - Fall [None]

NARRATIVE: CASE EVENT DATE: 20141103
